FAERS Safety Report 23597222 (Version 4)
Quarter: 2024Q2

REPORT INFORMATION
  Report Type: Spontaneous
  Country: US (occurrence: US)
  Receive Date: 20240305
  Receipt Date: 20240401
  Transmission Date: 20240716
  Serious: Yes (Hospitalization, Other)
  Sender: FDA-Public Use
  Company Number: US-ORGANON-O2403USA000064

PATIENT
  Sex: Female
  Weight: 73.923 kg

DRUGS (1)
  1. NEXPLANON [Suspect]
     Active Substance: ETONOGESTREL
     Indication: Contraception
     Dosage: 1 IMPLANT, FOR 3 YEARS
     Route: 059
     Dates: start: 20230829, end: 20240103

REACTIONS (6)
  - Cerebral infarction [Recovered/Resolved]
  - Cerebrovascular accident [Recovered/Resolved]
  - Carotid artery dissection [Recovered/Resolved]
  - Brain injury [Unknown]
  - Headache [Recovered/Resolved]
  - Anxiety [Recovered/Resolved]

NARRATIVE: CASE EVENT DATE: 20230101
